FAERS Safety Report 9954759 (Version 1)
Quarter: 2014Q1

REPORT INFORMATION
  Report Type: Report from Study
  Country: US (occurrence: US)
  Receive Date: 20140304
  Receipt Date: 20140304
  Transmission Date: 20141002
  Serious: No
  Sender: FDA-Public Use
  Company Number: US-ABBVIE-13P-163-1083205-00

PATIENT
  Age: 48 Year
  Sex: Female

DRUGS (4)
  1. HUMIRA [Suspect]
     Indication: ANKYLOSING SPONDYLITIS
     Dates: start: 20130318
  2. FLEXERIL [Concomitant]
     Indication: PAIN
     Dosage: AT BEDTIME
  3. NORCO [Concomitant]
     Indication: PAIN
     Dosage: 10/325
  4. BIRTH CONTROL PILL [Concomitant]
     Indication: PRODUCT USED FOR UNKNOWN INDICATION
     Dosage: DAILY

REACTIONS (2)
  - Drug ineffective [Unknown]
  - Pain in extremity [Unknown]
